FAERS Safety Report 11101994 (Version 1)
Quarter: 2015Q2

REPORT INFORMATION
  Report Type: Spontaneous
  Country: US (occurrence: US)
  Receive Date: 20150510
  Receipt Date: 20150510
  Transmission Date: 20150821
  Serious: Yes (Death)
  Sender: FDA-Public Use
  Company Number: US-PFIZER INC-2014281631

PATIENT
  Age: 83 Year
  Sex: Male
  Weight: 66 kg

DRUGS (7)
  1. LISINOPRIL. [Concomitant]
     Active Substance: LISINOPRIL
     Dosage: 10 MG, 1X/DAY
     Route: 048
     Dates: start: 20140916
  2. SUTENT [Suspect]
     Active Substance: SUNITINIB MALATE
     Indication: RENAL CANCER METASTATIC
     Dosage: 50 MG, DAYS 1-28 REST 14 DAYS
     Route: 048
     Dates: start: 20141016
  3. CETIRIZINE [Concomitant]
     Active Substance: CETIRIZINE HYDROCHLORIDE
     Indication: HYPERSENSITIVITY
     Dosage: 10 MG, DAILY
     Route: 048
     Dates: start: 20140916
  4. WARFARIN [Concomitant]
     Active Substance: WARFARIN
     Dosage: 5 MG, UNK
     Dates: start: 20140916
  5. IFEREX 150 FORTE [Concomitant]
     Active Substance: CYANOCOBALAMIN\FOLIC ACID\IRON
     Dosage: 150 MG, 2X/DAY
     Route: 048
     Dates: start: 20140916
  6. ACUVAIL [Concomitant]
     Active Substance: KETOROLAC TROMETHAMINE
     Dosage: 0.45 %, AS NEEDED
     Route: 047
     Dates: start: 20140916
  7. HYDROCODONE BITARTRATE ER [Concomitant]
     Dosage: 10 MG, 1X/DAY
     Dates: start: 20140916

REACTIONS (1)
  - Death [Fatal]
